FAERS Safety Report 8958220 (Version 1)
Quarter: 2012Q4

REPORT INFORMATION
  Report Type: 
  Country: PL (occurrence: PL)
  Receive Date: 20121211
  Receipt Date: 20121211
  Transmission Date: 20130627
  Serious: Yes (Hospitalization, Other)
  Sender: FDA-Public Use
  Company Number: PHHY2012PL112926

PATIENT
  Age: 60 Year

DRUGS (4)
  1. SANDIMMUN NEORAL [Suspect]
     Dosage: 2 DF, UNK
  2. MYFORTIC [Suspect]
     Dosage: UNK UKN, UNK
     Dates: start: 20101110
  3. TERTENSIF [Concomitant]
     Indication: BLOOD PRESSURE INCREASED
  4. AMLOZEK [Concomitant]
     Indication: HYPERTENSION

REACTIONS (9)
  - Diverticulum intestinal [Unknown]
  - Angina pectoris [Unknown]
  - Polyp [Unknown]
  - Cholelithiasis [Unknown]
  - Diverticulitis [Unknown]
  - Abdominal pain [Unknown]
  - Gastroenteritis [Unknown]
  - Urinary tract infection [Unknown]
  - Bacteriuria [Unknown]
